FAERS Safety Report 6167664-6 (Version None)
Quarter: 2009Q2

REPORT INFORMATION
  Report Type: 
  Country: None (occurrence: None)
  Receive Date: 20090424
  Receipt Date: 20090407
  Transmission Date: 20091009
  Serious: Yes (Death, Other)
  Sender: FDA-Public Use
  Company Number: PHHY2008CA29197

PATIENT
  Sex: Female

DRUGS (1)
  1. DIOVAN T30230++HY [Suspect]
     Route: 048

REACTIONS (10)
  - ACUTE LEUKAEMIA [None]
  - CHEST PAIN [None]
  - DYSPNOEA [None]
  - HYPERCALCAEMIA [None]
  - HYPERPARATHYROIDISM [None]
  - LEUKOCYTOSIS [None]
  - MYOCARDIAL ISCHAEMIA [None]
  - PARATHYROIDECTOMY [None]
  - PLATELET COUNT DECREASED [None]
  - PULMONARY EMBOLISM [None]
